FAERS Safety Report 18891263 (Version 3)
Quarter: 2021Q3

REPORT INFORMATION
  Report Type: Spontaneous
  Country: US (occurrence: US)
  Receive Date: 20210215
  Receipt Date: 20210827
  Transmission Date: 20211014
  Serious: Yes (Death, Other)
  Sender: FDA-Public Use
  Company Number: US-REGENERON PHARMACEUTICALS, INC.-2021-20911

PATIENT

DRUGS (1)
  1. EYLEA [Suspect]
     Active Substance: AFLIBERCEPT
     Indication: DIABETES MELLITUS
     Dosage: 2 MG, 5?6 WEEKS, LEFT EYE
     Route: 031
     Dates: start: 20190731, end: 20201026

REACTIONS (2)
  - Off label use [Unknown]
  - Cerebral haemorrhage [Fatal]
